FAERS Safety Report 20816425 (Version 1)
Quarter: 2022Q2

REPORT INFORMATION
  Report Type: Spontaneous
  Country: US (occurrence: US)
  Receive Date: 20220512
  Receipt Date: 20220512
  Transmission Date: 20220720
  Serious: No
  Sender: FDA-Public Use
  Company Number: US-ELI_LILLY_AND_COMPANY-US202205004265

PATIENT
  Age: 40 Year
  Sex: Female

DRUGS (1)
  1. ADCIRCA [Suspect]
     Active Substance: TADALAFIL
     Indication: Pulmonary arterial hypertension
     Dosage: 40 MG, DAILY
     Route: 048
     Dates: start: 20220412

REACTIONS (5)
  - Eye swelling [Unknown]
  - Skin discolouration [Unknown]
  - Joint swelling [Unknown]
  - Drug hypersensitivity [Unknown]
  - Eye pain [Unknown]

NARRATIVE: CASE EVENT DATE: 20220401
